FAERS Safety Report 4821981-8 (Version None)
Quarter: 2005Q4

REPORT INFORMATION
  Report Type: 
  Country: None (occurrence: None)
  Receive Date: 20051107
  Receipt Date: 20050922
  Transmission Date: 20060501
  Serious: Yes (Hospitalization)
  Sender: FDA-Public Use
  Company Number: US-BRISTOL-MYERS SQUIBB COMPANY-13120902

PATIENT
  Age: 41 Year
  Sex: Male

DRUGS (4)
  1. EFAVIRENZ [Suspect]
  2. LOPINAVIR + RITONAVIR [Suspect]
  3. LAMIVUDINE [Suspect]
  4. TENOFOVIR [Suspect]

REACTIONS (3)
  - HISTOPLASMOSIS DISSEMINATED [None]
  - IMMUNE RECONSTITUTION SYNDROME [None]
  - SPLENIC INFARCTION [None]
